FAERS Safety Report 21162230 (Version 1)
Quarter: 2022Q3

REPORT INFORMATION
  Report Type: Spontaneous
  Country: US (occurrence: None)
  Receive Date: 20220802
  Receipt Date: 20220802
  Transmission Date: 20221027
  Serious: Yes (Other)
  Sender: FDA-Public Use
  Company Number: 2022A266690

PATIENT
  Sex: Male

DRUGS (2)
  1. EVUSHELD [Suspect]
     Active Substance: CILGAVIMAB\TIXAGEVIMAB
     Indication: Acquired immunodeficiency syndrome
     Dosage: 150 TIXAGEVIMAB AND 150 CILGAVIMAB
     Route: 030
     Dates: start: 20220126
  2. EVUSHELD [Suspect]
     Active Substance: CILGAVIMAB\TIXAGEVIMAB
     Indication: Acquired immunodeficiency syndrome
     Dosage: 300 TIXAGEVIMAB AND 300 CILGAVIMAB
     Route: 030
     Dates: start: 20220329

REACTIONS (1)
  - Renal cell carcinoma [Unknown]
